FAERS Safety Report 4625658-3 (Version None)
Quarter: 2005Q1

REPORT INFORMATION
  Report Type: 
  Country: None (occurrence: None)
  Receive Date: 20050330
  Receipt Date: 20050311
  Transmission Date: 20050727
  Serious: Yes (Hospitalization, Other)
  Sender: FDA-Public Use
  Company Number: DE_030711712

PATIENT
  Age: 30 Year
  Sex: Female

DRUGS (1)
  1. ZYPREXA [Suspect]
     Indication: SCHIZOPHRENIA
     Dosage: 10 MG DAY
     Dates: start: 20030301, end: 20030602

REACTIONS (13)
  - BRAIN OEDEMA [None]
  - COGNITIVE DISORDER [None]
  - DRUG TOXICITY [None]
  - GRAND MAL CONVULSION [None]
  - HYPONATRAEMIA [None]
  - INFECTION [None]
  - INTENTIONAL MISUSE [None]
  - MUTISM [None]
  - PUPILLARY REFLEX IMPAIRED [None]
  - RHABDOMYOLYSIS [None]
  - STUPOR [None]
  - VOMITING [None]
  - WHITE BLOOD CELL COUNT INCREASED [None]
